FAERS Safety Report 7721866-3 (Version None)
Quarter: 2011Q3

REPORT INFORMATION
  Report Type: 
  Country: None (occurrence: None)
  Receive Date: 20110831
  Receipt Date: 20110822
  Transmission Date: 20111222
  Serious: Yes (Hospitalization, Other)
  Sender: FDA-Public Use
  Company Number: US-BAYER-2011-023812

PATIENT
  Age: 37 Year
  Sex: Female
  Weight: 49.887 kg

DRUGS (7)
  1. RELPAX [Concomitant]
     Indication: MIGRAINE
     Dosage: 40 MG, PRN
  2. CYANOCOBALAMIN [Concomitant]
     Dosage: UNK
     Route: 030
  3. ALLEGRA D 24 HOUR [Concomitant]
     Dosage: UNK UNK, BID
     Route: 048
  4. ZOMIG [Concomitant]
     Indication: MIGRAINE
     Dosage: 2.5 MG, PRN
     Route: 048
  5. ZANAFLEX [Concomitant]
     Dosage: 2 MG, UNK
     Route: 048
  6. YAZ [Suspect]
     Dosage: UNK
     Dates: start: 20071107, end: 20090901
  7. BACTRIM DS [Concomitant]
     Dosage: 960 MG, BID
     Route: 048

REACTIONS (4)
  - GALLBLADDER DISORDER [None]
  - PAIN [None]
  - INJURY [None]
  - GENERAL PHYSICAL HEALTH DETERIORATION [None]
